FAERS Safety Report 8511994-7 (Version None)
Quarter: 2012Q3

REPORT INFORMATION
  Report Type: 
  Country: None (occurrence: None)
  Receive Date: 20120716
  Receipt Date: 20120714
  Transmission Date: 20120928
  Serious: Yes (Death, Other)
  Sender: FDA-Public Use
  Company Number: PHHY2012JP060312

PATIENT
  Age: 44 Year
  Sex: Male

DRUGS (7)
  1. CYCLOSPORINE [Suspect]
     Indication: PROPHYLAXIS AGAINST GRAFT VERSUS HOST DISEASE
  2. ACYCLOVIR [Concomitant]
  3. IMMUNE GLOBULIN NOS [Concomitant]
  4. FLUDARABINE PHOSPHATE [Concomitant]
     Indication: BONE MARROW CONDITIONING REGIMEN
  5. CYCLOPHOSPHAMIDE [Concomitant]
     Indication: BONE MARROW CONDITIONING REGIMEN
  6. ANTIBIOTICS [Concomitant]
  7. CYTARABINE [Concomitant]
     Indication: BONE MARROW CONDITIONING REGIMEN

REACTIONS (3)
  - NON-HODGKIN'S LYMPHOMA [None]
  - ACUTE GRAFT VERSUS HOST DISEASE [None]
  - FOLLICLE CENTRE LYMPHOMA, FOLLICULAR GRADE I, II, III RECURRENT [None]
